FAERS Safety Report 13900940 (Version 1)
Quarter: 2017Q3

REPORT INFORMATION
  Report Type: Spontaneous
  Country: US (occurrence: US)
  Receive Date: 20170824
  Receipt Date: 20170824
  Transmission Date: 20171127
  Serious: Yes (Other)
  Sender: FDA-Public Use
  Company Number: US-ENDO PHARMACEUTICALS INC-2017-003415

PATIENT
  Sex: Female
  Weight: 57.61 kg

DRUGS (2)
  1. XELJANZ [Concomitant]
     Active Substance: TOFACITINIB CITRATE
     Indication: RHEUMATOID ARTHRITIS
     Dosage: 5 MG, BID
     Route: 048
  2. PREDNISONE TABLETS 20MG [Suspect]
     Active Substance: PREDNISONE
     Indication: ARTHRALGIA
     Dosage: 20 MG, DAILY
     Route: 048

REACTIONS (1)
  - Osteonecrosis [Not Recovered/Not Resolved]
